FAERS Safety Report 13298700 (Version 2)
Quarter: 2017Q1

REPORT INFORMATION
  Report Type: Report from Study
  Country: BR (occurrence: BR)
  Receive Date: 20170306
  Receipt Date: 20170316
  Transmission Date: 20170428
  Serious: Yes (Other)
  Sender: FDA-Public Use
  Company Number: BR-JNJFOC-20170303675

PATIENT
  Sex: Female
  Weight: 58 kg

DRUGS (4)
  1. SIMVASTATIN. [Concomitant]
     Active Substance: SIMVASTATIN
     Route: 065
  2. SIMPONI [Suspect]
     Active Substance: GOLIMUMAB
     Indication: RHEUMATOID ARTHRITIS
     Route: 058
     Dates: start: 20161220
  3. TECNOMET [Concomitant]
     Active Substance: METHOTREXATE
     Route: 065
  4. DEFLAZACORTE [Concomitant]
     Active Substance: DEFLAZACORT
     Route: 065

REACTIONS (1)
  - Urinary tract infection [Not Recovered/Not Resolved]
